FAERS Safety Report 20537411 (Version 4)
Quarter: 2022Q2

REPORT INFORMATION
  Report Type: Spontaneous
  Country: JP (occurrence: JP)
  Receive Date: 20220302
  Receipt Date: 20220609
  Transmission Date: 20220720
  Serious: No
  Sender: FDA-Public Use
  Company Number: JP-GLAXOSMITHKLINE-JP2022JPN035357

PATIENT

DRUGS (3)
  1. SOTROVIMAB [Suspect]
     Active Substance: SOTROVIMAB
     Indication: COVID-19
     Dosage: 500 MG PER DAY
     Route: 042
     Dates: start: 20220222, end: 20220222
  2. DEXTROMETHORPHAN HYDROBROMIDE [Suspect]
     Active Substance: DEXTROMETHORPHAN HYDROBROMIDE
     Indication: Cough
     Dosage: 90 MG PER DAY
     Route: 048
     Dates: start: 20220221, end: 20220225
  3. FERROUS SULFATE [Suspect]
     Active Substance: FERROUS SULFATE
     Indication: Iron deficiency anaemia
     Dosage: 105 MG PER DAY
     Route: 048
     Dates: start: 20220222, end: 20220228

REACTIONS (2)
  - Exposure during pregnancy [Unknown]
  - Live birth [Unknown]
